FAERS Safety Report 6108653-7 (Version None)
Quarter: 2009Q1

REPORT INFORMATION
  Report Type: 
  Country: None (occurrence: None)
  Receive Date: 20090305
  Receipt Date: 20090225
  Transmission Date: 20090719
  Serious: Yes (Hospitalization)
  Sender: FDA-Public Use
  Company Number: DAV-AE-MTX-09-013

PATIENT
  Age: 7 Year
  Sex: Male

DRUGS (2)
  1. METHOTREXATE [Suspect]
     Indication: LYMPHOMA
     Dosage: INTRATHECAL
     Route: 037
  2. CYTARABINE [Concomitant]

REACTIONS (3)
  - ARACHNOIDITIS [None]
  - CEREBRAL ATROPHY [None]
  - MYELITIS [None]
